FAERS Safety Report 22383003 (Version 5)
Quarter: 2023Q4

REPORT INFORMATION
  Report Type: Spontaneous
  Country: US (occurrence: US)
  Receive Date: 20230530
  Receipt Date: 20231114
  Transmission Date: 20240110
  Serious: Yes (Hospitalization, Disabling, Other)
  Sender: FDA-Public Use
  Company Number: US-SA-SAC20230526000199

PATIENT
  Age: 59 Year
  Sex: Male

DRUGS (13)
  1. DUPIXENT [Suspect]
     Active Substance: DUPILUMAB
     Indication: Bronchiectasis
     Dosage: 300 MG, QOW
     Route: 058
     Dates: start: 20230411
  2. DUPIXENT [Suspect]
     Active Substance: DUPILUMAB
     Indication: Nasal polyps
  3. DUPIXENT [Suspect]
     Active Substance: DUPILUMAB
     Indication: Asthma
  4. ADVAIR HFA [Concomitant]
     Active Substance: FLUTICASONE PROPIONATE\SALMETEROL XINAFOATE
     Dosage: UNK
  5. ALBUTEROL [Concomitant]
     Active Substance: ALBUTEROL
  6. ALENDRONATE [Concomitant]
     Active Substance: ALENDRONATE SODIUM
  7. CALCIUM [Concomitant]
     Active Substance: CALCIUM
  8. FOSAMAX [Concomitant]
     Active Substance: ALENDRONATE SODIUM
  9. LORATADINE [Concomitant]
     Active Substance: LORATADINE
  10. PREDNISONE [Concomitant]
     Active Substance: PREDNISONE
  11. SIMVASTATIN [Concomitant]
     Active Substance: SIMVASTATIN
  12. HI CAL [CALCIUM] [Concomitant]
     Dosage: 325 MG
  13. FORTEO [Concomitant]
     Active Substance: TERIPARATIDE

REACTIONS (6)
  - Pneumonia [Unknown]
  - Loss of personal independence in daily activities [Not Recovered/Not Resolved]
  - Impaired quality of life [Unknown]
  - Asthma [Unknown]
  - Product use in unapproved indication [Unknown]
  - Drug ineffective [Unknown]

NARRATIVE: CASE EVENT DATE: 20230101
